FAERS Safety Report 20614936 (Version 1)
Quarter: 2022Q1

REPORT INFORMATION
  Report Type: Report from Study
  Country: US (occurrence: US)
  Receive Date: 20220321
  Receipt Date: 20220321
  Transmission Date: 20220423
  Serious: Yes (Other)
  Sender: FDA-Public Use
  Company Number: US-ABBVIE-22K-163-4319456-00

PATIENT
  Sex: Male

DRUGS (2)
  1. HUMIRA [Suspect]
     Active Substance: ADALIMUMAB
     Indication: Psoriasis
     Route: 058
  2. MODERNA COVID-19 VACCINE [Concomitant]
     Active Substance: ELASOMERAN
     Indication: COVID-19 immunisation
     Route: 030

REACTIONS (7)
  - Eye haemorrhage [Unknown]
  - Cataract [Unknown]
  - Blindness [Not Recovered/Not Resolved]
  - Skin cancer [Not Recovered/Not Resolved]
  - Coombs test positive [Not Recovered/Not Resolved]
  - Ocular discomfort [Unknown]
  - Arthritis [Not Recovered/Not Resolved]
